FAERS Safety Report 14647506 (Version 5)
Quarter: 2019Q1

REPORT INFORMATION
  Report Type: Report from Study
  Country: JP (occurrence: JP)
  Receive Date: 20180316
  Receipt Date: 20190328
  Transmission Date: 20190417
  Serious: Yes (Hospitalization, Other)
  Sender: FDA-Public Use
  Company Number: JP-INCYTE CORPORATION-2018IN002334

PATIENT

DRUGS (4)
  1. JAKAVI [Suspect]
     Active Substance: RUXOLITINIB
     Dosage: 10 MG, BID
     Route: 048
     Dates: start: 20171113
  2. JAKAVI [Suspect]
     Active Substance: RUXOLITINIB
     Indication: POLYCYTHAEMIA VERA
     Dosage: 5 MG, BID
     Route: 048
     Dates: start: 20171016, end: 20171112
  3. HYDREA [Concomitant]
     Active Substance: HYDROXYUREA
     Indication: POLYCYTHAEMIA VERA
     Dosage: 500 MG, UNK
     Route: 048
     Dates: end: 20171016
  4. ASPIRIN W/CODEINE PHOSPHATE [Suspect]
     Active Substance: ASPIRIN\CODEINE\CODEINE PHOSPHATE
     Indication: PRODUCT USED FOR UNKNOWN INDICATION
     Dosage: UNK
     Route: 048

REACTIONS (2)
  - Gastric haemorrhage [Recovering/Resolving]
  - Pneumonia [Recovering/Resolving]

NARRATIVE: CASE EVENT DATE: 20180112
